FAERS Safety Report 20757521 (Version 2)
Quarter: 2022Q2

REPORT INFORMATION
  Report Type: Spontaneous
  Country: ES (occurrence: ES)
  Receive Date: 20220427
  Receipt Date: 20220524
  Transmission Date: 20220721
  Serious: Yes (Hospitalization, Other)
  Sender: FDA-Public Use
  Company Number: ES-LABALTER-202200281

PATIENT
  Age: 87 Year
  Sex: Female

DRUGS (3)
  1. OMEPRAZOLE [Suspect]
     Active Substance: OMEPRAZOLE
     Indication: Abdominal pain upper
     Dosage: 20 MILLIGRAM, QD
  2. DABIGATRAN [Concomitant]
     Active Substance: DABIGATRAN
     Indication: Anticoagulant therapy
     Dosage: 150 MILLIGRAM
  3. DABIGATRAN [Concomitant]
     Active Substance: DABIGATRAN
     Dosage: 150 MILLIGRAM, BID,150 MILLIGRAM, 2X / DAY

REACTIONS (3)
  - Ulcer haemorrhage [Unknown]
  - Condition aggravated [Unknown]
  - Prescription drug used without a prescription [Unknown]
